FAERS Safety Report 16825778 (Version 1)
Quarter: 2019Q3

REPORT INFORMATION
  Report Type: Spontaneous
  Country: GB (occurrence: GB)
  Receive Date: 20190919
  Receipt Date: 20190919
  Transmission Date: 20191005
  Serious: Yes (Other)
  Sender: FDA-Public Use
  Company Number: GB-TEVA-2019-GB-1108971

PATIENT
  Age: 43 Year
  Sex: Female
  Weight: 57.6 kg

DRUGS (3)
  1. CLENIL MODULITE [Concomitant]
     Active Substance: BECLOMETHASONE DIPROPIONATE
  2. METRONIDAZOLE. [Suspect]
     Active Substance: METRONIDAZOLE
     Indication: TOOTH ABSCESS
     Dosage: 1200 MILLIGRAM
     Route: 048
     Dates: start: 20190819
  3. VENTOLIN [Concomitant]
     Active Substance: ALBUTEROL SULFATE

REACTIONS (4)
  - Eye disorder [Not Recovered/Not Resolved]
  - Pain of skin [Not Recovered/Not Resolved]
  - Gait disturbance [Not Recovered/Not Resolved]
  - Feeling drunk [Not Recovered/Not Resolved]

NARRATIVE: CASE EVENT DATE: 20190820
